FAERS Safety Report 19007577 (Version 1)
Quarter: 2021Q1

REPORT INFORMATION
  Report Type: Spontaneous
  Country: IT (occurrence: IT)
  Receive Date: 20210315
  Receipt Date: 20210315
  Transmission Date: 20210420
  Serious: Yes (Death, Other)
  Sender: FDA-Public Use
  Company Number: IT-AUROBINDO-AUR-APL-2021-009879

PATIENT
  Age: 79 Year
  Sex: Male
  Weight: 82 kg

DRUGS (3)
  1. TECENTRIQ [Suspect]
     Active Substance: ATEZOLIZUMAB
     Indication: SMALL CELL LUNG CANCER EXTENSIVE STAGE
     Dosage: 1200 MILLIGRAM PER 21 DAYS
     Route: 042
     Dates: start: 20210113
  2. CARBOPLATIN. [Suspect]
     Active Substance: CARBOPLATIN
     Indication: SMALL CELL LUNG CANCER EXTENSIVE STAGE
     Dosage: 450 MILLIGRAM,PER 21 DAYS (AUC 6 AT A REDUCED DOSE OF 40%)
     Route: 042
     Dates: start: 20210113
  3. ETOPOSIDE. [Suspect]
     Active Substance: ETOPOSIDE
     Indication: SMALL CELL LUNG CANCER EXTENSIVE STAGE
     Dosage: 80 MILLIGRAM/SQ. METER PER 21 DAYS AT A REDUCED DOSE OF 15%
     Route: 042
     Dates: start: 20210113

REACTIONS (2)
  - Febrile neutropenia [Fatal]
  - Infection [Fatal]

NARRATIVE: CASE EVENT DATE: 20210120
